FAERS Safety Report 13236925 (Version 1)
Quarter: 2017Q1

REPORT INFORMATION
  Report Type: Spontaneous
  Country: GU (occurrence: GT)
  Receive Date: 20170215
  Receipt Date: 20170215
  Transmission Date: 20170428
  Serious: Yes (Death)
  Sender: FDA-Public Use
  Company Number: GT-CELGENEUS-GTM-2017022087

PATIENT
  Age: 66 Year
  Sex: Female

DRUGS (1)
  1. REVLIMID [Suspect]
     Active Substance: LENALIDOMIDE
     Indication: PLASMA CELL MYELOMA
     Dosage: 25 MILLIGRAM
     Route: 048
     Dates: start: 201701, end: 201702

REACTIONS (3)
  - Hypovolaemic shock [Fatal]
  - Acute kidney injury [Fatal]
  - Infection [Fatal]

NARRATIVE: CASE EVENT DATE: 20170205
